FAERS Safety Report 16582118 (Version 2)
Quarter: 2019Q3

REPORT INFORMATION
  Report Type: Report from Study
  Country: US (occurrence: US)
  Receive Date: 20190717
  Receipt Date: 20190809
  Transmission Date: 20191004
  Serious: Yes (Death)
  Sender: FDA-Public Use
  Company Number: PHHY2019US164601

PATIENT
  Age: 58 Year
  Sex: Female
  Weight: 59.6 kg

DRUGS (1)
  1. KYMRIAH [Suspect]
     Active Substance: TISAGENLECLEUCEL
     Indication: DIFFUSE LARGE B-CELL LYMPHOMA
     Dosage: (0.8E8 CAR-POSITIVE VIABLE T-CELLS), ONCE/SINGLE
     Route: 042
     Dates: start: 20190220

REACTIONS (3)
  - Diffuse large B-cell lymphoma [Fatal]
  - Malignant neoplasm progression [Fatal]
  - Out of specification test results [Unknown]

NARRATIVE: CASE EVENT DATE: 20190320
